FAERS Safety Report 9880308 (Version 1)
Quarter: 2014Q1

REPORT INFORMATION
  Report Type: Spontaneous
  Country: US (occurrence: US)
  Receive Date: 20140207
  Receipt Date: 20140207
  Transmission Date: 20141002
  Serious: Yes (Other)
  Sender: FDA-Public Use
  Company Number: US-AMGEN-USASP2014008039

PATIENT
  Age: 73 Year
  Sex: Male
  Weight: 72.56 kg

DRUGS (11)
  1. ENBREL [Suspect]
     Indication: PSORIASIS
     Dosage: 50 MG, QWK
     Route: 058
     Dates: start: 2000
  2. ENBREL [Suspect]
     Indication: PSORIATIC ARTHROPATHY
  3. PROBIOTIC                          /06395501/ [Concomitant]
     Dosage: UNK
  4. VIT D3 [Concomitant]
     Dosage: UNK
  5. RAPAFLO [Concomitant]
     Dosage: UNK
  6. FOLTX [Concomitant]
     Dosage: UNK
  7. DIOVAN [Concomitant]
     Dosage: UNK
  8. LIDOCAINE [Concomitant]
     Dosage: UNK
  9. MELOXICAM [Concomitant]
     Dosage: UNK
  10. NEXIUM                             /01479302/ [Concomitant]
     Dosage: UNK
  11. NUCYNTA [Concomitant]
     Dosage: UNK

REACTIONS (2)
  - Amyotrophic lateral sclerosis [Unknown]
  - Insomnia [Unknown]
